FAERS Safety Report 15927777 (Version 1)
Quarter: 2019Q1

REPORT INFORMATION
  Report Type: Spontaneous
  Country: US (occurrence: US)
  Receive Date: 20190206
  Receipt Date: 20190206
  Transmission Date: 20190417
  Serious: Yes (Hospitalization, Disabling)
  Sender: FDA-Public Use
  Company Number: US-JNJFOC-20190204083

PATIENT
  Age: 63 Year
  Sex: Male

DRUGS (1)
  1. INVOKAMET [Suspect]
     Active Substance: CANAGLIFLOZIN\METFORMIN HYDROCHLORIDE
     Indication: TYPE 2 DIABETES MELLITUS
     Dosage: 150/1000 MG
     Route: 048
     Dates: start: 20150303

REACTIONS (4)
  - Leg amputation [Unknown]
  - Gangrene [Unknown]
  - Osteomyelitis [Unknown]
  - Diabetic foot [Unknown]

NARRATIVE: CASE EVENT DATE: 201508
